FAERS Safety Report 4308675-2 (Version None)
Quarter: 2004Q1

REPORT INFORMATION
  Report Type: 
  Country: None (occurrence: None)
  Receive Date: 20040301
  Receipt Date: 20040301
  Transmission Date: 20041129
  Serious: Yes (Other)
  Sender: FDA-Public Use
  Company Number: None

PATIENT
  Age: 50 Year
  Sex: Male
  Weight: 88.4514 kg

DRUGS (1)
  1. ZICAM [Suspect]
     Dosage: 1 SQRT NASAL
     Route: 045

REACTIONS (5)
  - ANOSMIA [None]
  - BURNING SENSATION [None]
  - HEADACHE [None]
  - RHINORRHOEA [None]
  - SINUS DISORDER [None]
